FAERS Safety Report 19495555 (Version 1)
Quarter: 2021Q3

REPORT INFORMATION
  Report Type: Spontaneous
  Country: GB (occurrence: GB)
  Receive Date: 20210706
  Receipt Date: 20210706
  Transmission Date: 20211014
  Serious: Yes (Life-Threatening, Hospitalization, Other)
  Sender: FDA-Public Use
  Company Number: GB-ACCORD-230668

PATIENT
  Age: 63 Year
  Sex: Male
  Weight: 110 kg

DRUGS (1)
  1. AMITRIPTYLINE [Suspect]
     Active Substance: AMITRIPTYLINE
     Indication: PRODUCT USED FOR UNKNOWN INDICATION
     Route: 048
     Dates: start: 202103, end: 202105

REACTIONS (6)
  - Withdrawal syndrome [Not Recovered/Not Resolved]
  - Dry mouth [Unknown]
  - Constipation [Unknown]
  - Dermatitis allergic [Unknown]
  - Hypertension [Unknown]
  - Dyspnoea [Recovered/Resolved]

NARRATIVE: CASE EVENT DATE: 202103
